FAERS Safety Report 9379717 (Version 1)
Quarter: 2013Q3

REPORT INFORMATION
  Report Type: Spontaneous
  Country: IT (occurrence: IT)
  Receive Date: 20130702
  Receipt Date: 20130702
  Transmission Date: 20140515
  Serious: Yes (Hospitalization)
  Sender: FDA-Public Use
  Company Number: IT-PFIZER INC-2013189364

PATIENT
  Age: 89 Year
  Sex: Female

DRUGS (6)
  1. CORDARONE [Suspect]
     Indication: TACHYCARDIA
     Dosage: 200 MG, DAILY
     Route: 048
     Dates: start: 20130101, end: 20130523
  2. DILATREND [Suspect]
     Indication: ATRIOVENTRICULAR BLOCK
     Dosage: 2 DF, DAILY
     Route: 048
     Dates: start: 20130520, end: 20130523
  3. PANTOPRAZOLE [Concomitant]
     Dosage: UNK
  4. FORZAAR [Concomitant]
     Dosage: UNK
  5. CORIPREN [Concomitant]
     Dosage: UNK
  6. PLAVIX [Concomitant]
     Dosage: UNK

REACTIONS (3)
  - Bradycardia [Unknown]
  - Asthenia [Unknown]
  - Vertigo [Unknown]
